FAERS Safety Report 8211173-7 (Version None)
Quarter: 2012Q1

REPORT INFORMATION
  Report Type: 
  Country: None (occurrence: None)
  Receive Date: 20120315
  Receipt Date: 20120306
  Transmission Date: 20120608
  Serious: Yes (Other)
  Sender: FDA-Public Use
  Company Number: US-SANOFI-AVENTIS-2012SA015643

PATIENT
  Sex: Female

DRUGS (2)
  1. LASIX [Suspect]
  2. FESOTERODINE [Suspect]
     Route: 048
     Dates: start: 20120202, end: 20120213

REACTIONS (3)
  - OEDEMA PERIPHERAL [None]
  - POLLAKIURIA [None]
  - URINARY RETENTION [None]
